FAERS Safety Report 6613469-9 (Version None)
Quarter: 2010Q1

REPORT INFORMATION
  Report Type: 
  Country: None (occurrence: None)
  Receive Date: 20100304
  Receipt Date: 20100218
  Transmission Date: 20100710
  Serious: No
  Sender: FDA-Public Use
  Company Number: US-JNJFOC-20100208939

PATIENT
  Sex: Female
  Weight: 90.72 kg

DRUGS (4)
  1. DURAGESIC-100 [Suspect]
     Indication: PAIN
     Route: 062
  2. FENTANYL-100 [Suspect]
     Indication: PAIN
     Route: 062
  3. PERCOCET [Concomitant]
     Indication: BREAKTHROUGH PAIN
     Route: 048
  4. FOSAMAX [Concomitant]
     Indication: FRACTURE
     Route: 048

REACTIONS (3)
  - DRUG INEFFECTIVE [None]
  - HYPERSENSITIVITY [None]
  - WRONG TECHNIQUE IN DRUG USAGE PROCESS [None]
